FAERS Safety Report 8381912-3 (Version None)
Quarter: 2012Q2

REPORT INFORMATION
  Report Type: 
  Country: None (occurrence: None)
  Receive Date: 20120522
  Receipt Date: 20120522
  Transmission Date: 20120825
  Serious: Yes (Disabling)
  Sender: FDA-Public Use
  Company Number: None

PATIENT
  Sex: Male
  Weight: 86.1834 kg

DRUGS (1)
  1. PROPECIA [Suspect]
     Indication: ALOPECIA
     Dosage: 1 DAILY PO APPROX 10 DAYS
     Route: 048

REACTIONS (5)
  - LOSS OF LIBIDO [None]
  - DEPRESSION [None]
  - MEMORY IMPAIRMENT [None]
  - WEIGHT INCREASED [None]
  - ERECTILE DYSFUNCTION [None]
